FAERS Safety Report 17707293 (Version 1)
Quarter: 2020Q2

REPORT INFORMATION
  Report Type: Spontaneous
  Country: FR (occurrence: FR)
  Receive Date: 20200424
  Receipt Date: 20200424
  Transmission Date: 20200714
  Serious: Yes (Other)
  Sender: FDA-Public Use
  Company Number: FR-ALLERGAN-2016494US

PATIENT
  Sex: Female

DRUGS (6)
  1. DEXAFREE [Suspect]
     Active Substance: DEXAMETHASONE SODIUM PHOSPHATE
     Indication: CATARACT
     Dosage: 1 DROP, TID FOR 15 DAYS ON THE RIGHT EYE
     Route: 047
     Dates: start: 202003
  2. DEXAFREE [Suspect]
     Active Substance: DEXAMETHASONE SODIUM PHOSPHATE
     Dosage: 1 DROP, BID FOR 7DAYS ON THE RIGHT EYE
     Route: 047
  3. FLURBIPROFEN SODIUM UNK [Suspect]
     Active Substance: FLURBIPROFEN SODIUM
     Indication: CATARACT
     Dosage: 1 DROP, TID FOR 1 MONTH ON THE RIGHT EYE
     Route: 047
  4. AZYTER [Suspect]
     Active Substance: AZITHROMYCIN ANHYDROUS
     Indication: CATARACT
     Dosage: 1 DROP, BID MORNING AND EVENING FOR 3 DAYS ON THE RIGHT EYE
     Route: 047
     Dates: start: 202003, end: 202003
  5. DEXAFREE [Suspect]
     Active Substance: DEXAMETHASONE SODIUM PHOSPHATE
     Dosage: 1 DROP, QD FOR 7 DAYS ON THE RIGHT EYE
     Route: 047
  6. APROKAM [Suspect]
     Active Substance: CEFUROXIME SODIUM
     Indication: CATARACT
     Dosage: UNK, QD
     Dates: start: 20200310, end: 20200310

REACTIONS (4)
  - Product prescribing issue [Unknown]
  - Product preparation error [Unknown]
  - Product use in unapproved indication [Unknown]
  - Endophthalmitis [Recovering/Resolving]
